FAERS Safety Report 9509401 (Version 1)
Quarter: 2013Q3

REPORT INFORMATION
  Report Type: Spontaneous
  Country: US (occurrence: US)
  Receive Date: 20130909
  Receipt Date: 20130909
  Transmission Date: 20140515
  Serious: No
  Sender: FDA-Public Use
  Company Number: US-BRISTOL-MYERS SQUIBB COMPANY-17309337

PATIENT
  Age: 16 Year
  Sex: Male
  Weight: 45.35 kg

DRUGS (6)
  1. ABILIFY [Suspect]
     Indication: ATTENTION DEFICIT/HYPERACTIVITY DISORDER
     Dosage: LAST DOSE: 22JAN2013
     Dates: start: 20121231
  2. ABILIFY [Suspect]
     Indication: BIPOLAR DISORDER
     Dosage: LAST DOSE: 22JAN2013
     Dates: start: 20121231
  3. ABILIFY [Suspect]
     Indication: SCHIZOPHRENIA
     Dosage: LAST DOSE: 22JAN2013
     Dates: start: 20121231
  4. ABILIFY [Suspect]
     Indication: DEPRESSION
     Dosage: LAST DOSE: 22JAN2013
     Dates: start: 20121231
  5. PROZAC [Concomitant]
  6. ADDERALL XR [Concomitant]

REACTIONS (4)
  - Fatigue [Recovered/Resolved]
  - Decreased appetite [Recovered/Resolved]
  - Pain in extremity [Recovered/Resolved]
  - Myalgia [Recovered/Resolved]
